FAERS Safety Report 8086819-7 (Version None)
Quarter: 2012Q1

REPORT INFORMATION
  Report Type: 
  Country: None (occurrence: None)
  Receive Date: 20120128
  Receipt Date: 20110518
  Transmission Date: 20120608
  Serious: No
  Sender: FDA-Public Use
  Company Number: US-ABBOTT-11P-163-0727033-00

PATIENT

DRUGS (4)
  1. HUMIRA [Suspect]
     Dates: end: 20110101
  2. HUMIRA [Suspect]
  3. HUMIRA [Suspect]
     Indication: PSORIASIS
     Dates: start: 20070101
  4. HUMIRA [Suspect]
     Dates: start: 20110101

REACTIONS (4)
  - RESPIRATORY TRACT INFECTION [None]
  - PSORIASIS [None]
  - BRONCHITIS [None]
  - CELLULITIS [None]
